FAERS Safety Report 7046599-0 (Version None)
Quarter: 2010Q4

REPORT INFORMATION
  Report Type: 
  Country: None (occurrence: None)
  Receive Date: 20101015
  Receipt Date: 20101007
  Transmission Date: 20110411
  Serious: No
  Sender: FDA-Public Use
  Company Number: US-BIOGENIDEC-2010BI030032

PATIENT
  Sex: Female

DRUGS (1)
  1. TYSABRI [Suspect]
     Indication: MULTIPLE SCLEROSIS
     Route: 042
     Dates: start: 20100306

REACTIONS (9)
  - ABDOMINAL PAIN [None]
  - CENTRAL NERVOUS SYSTEM LESION [None]
  - COLITIS [None]
  - DIARRHOEA [None]
  - FATIGUE [None]
  - HYPERSOMNIA [None]
  - RASH [None]
  - RASH PRURITIC [None]
  - WHITE BLOOD CELL COUNT INCREASED [None]
